FAERS Safety Report 4911977-X (Version None)
Quarter: 2006Q1

REPORT INFORMATION
  Report Type: 
  Country: None (occurrence: None)
  Receive Date: 20060215
  Receipt Date: 20060207
  Transmission Date: 20060701
  Serious: Yes (Life-Threatening, Hospitalization)
  Sender: FDA-Public Use
  Company Number: PHBS2006DE02044

PATIENT
  Age: 20 Year
  Sex: Male

DRUGS (8)
  1. CYCLOSPORINE [Suspect]
     Indication: STEM CELL TRANSPLANT
     Route: 065
  2. TREOSULFAN [Suspect]
     Indication: STEM CELL TRANSPLANT
  3. FLUDARABINE PHOSPHATE [Suspect]
     Indication: STEM CELL TRANSPLANT
  4. IMIPENEM [Concomitant]
  5. TEICOPLANIN [Concomitant]
  6. FAMCICLOVIR [Concomitant]
  7. AMPHOTERICIN B [Concomitant]
     Dosage: 1 MG/KG/D
  8. CASPOFUNGIN [Concomitant]

REACTIONS (13)
  - ACUTE RESPIRATORY FAILURE [None]
  - ASPERGILLOMA [None]
  - C-REACTIVE PROTEIN INCREASED [None]
  - CAPILLARY LEAK SYNDROME [None]
  - CRYPTOGENIC ORGANIZING PNEUMONIA [None]
  - FUNGUS SEROLOGY TEST POSITIVE [None]
  - GRAFT VERSUS HOST DISEASE [None]
  - HAEMOPTYSIS [None]
  - LIFE SUPPORT [None]
  - PULMONARY HAEMORRHAGE [None]
  - PYREXIA [None]
  - STAPHYLOCOCCAL INFECTION [None]
  - TRACHEOSTOMY [None]
